FAERS Safety Report 8621449-7 (Version None)
Quarter: 2012Q3

REPORT INFORMATION
  Report Type: 
  Country: None (occurrence: None)
  Receive Date: 20120824
  Receipt Date: 20120706
  Transmission Date: 20120928
  Serious: No
  Sender: FDA-Public Use
  Company Number: US-ASTRAZENECA-2012SE46541

PATIENT
  Age: 71 Year
  Sex: Female
  Weight: 81.6 kg

DRUGS (7)
  1. CRESTOR [Suspect]
     Route: 048
  2. ZOCOR [Concomitant]
  3. CLONAZEPAM [Concomitant]
  4. BP PILL [Concomitant]
  5. ALIV [Concomitant]
  6. ZETIA [Concomitant]
  7. CRESTOR [Suspect]
     Route: 048
     Dates: start: 20110901

REACTIONS (4)
  - OFF LABEL USE [None]
  - DRUG INEFFECTIVE [None]
  - RASH GENERALISED [None]
  - BLOOD TEST ABNORMAL [None]
